FAERS Safety Report 13085774 (Version 2)
Quarter: 2017Q1

REPORT INFORMATION
  Report Type: Report from Study
  Country: US (occurrence: US)
  Receive Date: 20170104
  Receipt Date: 20170207
  Transmission Date: 20170428
  Serious: Yes (Other)
  Sender: FDA-Public Use
  Company Number: US-BAYER-2016-246826

PATIENT
  Age: 72 Year
  Sex: Male

DRUGS (3)
  1. STIVARGA [Suspect]
     Active Substance: REGORAFENIB
     Indication: APPENDIX CANCER
     Dosage: 80 MG, QD
     Route: 048
     Dates: start: 20161215, end: 20161218
  2. STIVARGA [Suspect]
     Active Substance: REGORAFENIB
     Indication: APPENDIX CANCER
     Dosage: 120 MG, QD
     Route: 048
     Dates: start: 20161219, end: 20161224
  3. STIVARGA [Suspect]
     Active Substance: REGORAFENIB
     Indication: APPENDIX CANCER
     Dosage: 40 MG, BID
     Route: 048
     Dates: start: 20170116

REACTIONS (5)
  - Underdose [None]
  - Abnormal loss of weight [Not Recovered/Not Resolved]
  - Pain in extremity [Recovering/Resolving]
  - Abasia [Recovering/Resolving]
  - Asthenia [Not Recovered/Not Resolved]

NARRATIVE: CASE EVENT DATE: 201612
